FAERS Safety Report 6880394-8 (Version None)
Quarter: 2010Q3

REPORT INFORMATION
  Report Type: 
  Country: None (occurrence: None)
  Receive Date: 20100727
  Receipt Date: 20100723
  Transmission Date: 20110219
  Serious: Yes (Hospitalization, Disabling)
  Sender: FDA-Public Use
  Company Number: A0779418A

PATIENT
  Age: 53 Year
  Sex: Male

DRUGS (2)
  1. LAMICTAL [Suspect]
     Indication: BIPOLAR DISORDER
     Dosage: 150MG PER DAY
     Route: 048
     Dates: start: 20070215
  2. LITHIUM [Concomitant]

REACTIONS (30)
  - ADVERSE DRUG REACTION [None]
  - ARTHRALGIA [None]
  - BALANCE DISORDER [None]
  - COMA [None]
  - CONJUNCTIVITIS [None]
  - CORNEAL ABRASION [None]
  - DEPRESSION [None]
  - DYSARTHRIA [None]
  - DYSPHAGIA [None]
  - ERYTHEMA MULTIFORME [None]
  - EYE INJURY [None]
  - FATIGUE [None]
  - GASTROOESOPHAGEAL REFLUX DISEASE [None]
  - INFLUENZA LIKE ILLNESS [None]
  - JOINT INJURY [None]
  - NASAL CONGESTION [None]
  - OCULAR HYPERAEMIA [None]
  - OROPHARYNGEAL PAIN [None]
  - PHARYNGEAL INFLAMMATION [None]
  - POST-TRAUMATIC STRESS DISORDER [None]
  - PYREXIA [None]
  - RASH MACULO-PAPULAR [None]
  - RHINORRHOEA [None]
  - SKIN INJURY [None]
  - STEVENS-JOHNSON SYNDROME [None]
  - TERMINAL STATE [None]
  - TOXIC EPIDERMAL NECROLYSIS [None]
  - TRAUMATIC LUNG INJURY [None]
  - UPPER RESPIRATORY TRACT INFECTION [None]
  - VISUAL ACUITY REDUCED [None]
